FAERS Safety Report 23296697 (Version 2)
Quarter: 2024Q1

REPORT INFORMATION
  Report Type: Report from Study
  Country: US (occurrence: US)
  Receive Date: 20231214
  Receipt Date: 20240314
  Transmission Date: 20240410
  Serious: Yes (Hospitalization)
  Sender: FDA-Public Use
  Company Number: US-ARGENX-2023-ARGX-US004375AA

PATIENT

DRUGS (1)
  1. VYVGART [Suspect]
     Active Substance: EFGARTIGIMOD ALFA-FCAB
     Indication: Myasthenia gravis
     Dosage: UNK
     Route: 042
     Dates: start: 20231128

REACTIONS (8)
  - Atrial fibrillation [Unknown]
  - Atrial fibrillation [Unknown]
  - Left ventricular failure [Unknown]
  - Pneumonia [Unknown]
  - Sepsis [Unknown]
  - Loss of consciousness [Unknown]
  - Oropharyngeal pain [Unknown]
  - Haemoptysis [Unknown]

NARRATIVE: CASE EVENT DATE: 20231205
